FAERS Safety Report 25923288 (Version 2)
Quarter: 2025Q4

REPORT INFORMATION
  Report Type: Report from Study
  Country: PH (occurrence: PH)
  Receive Date: 20251015
  Receipt Date: 20251028
  Transmission Date: 20260117
  Serious: Yes (Death)
  Sender: ROCHE
  Company Number: PH-ROCHE-10000409869

PATIENT
  Sex: Female
  Weight: 45 kg

DRUGS (1)
  1. PHESGO [Suspect]
     Active Substance: HYALURONIDASE-ZZXF\PERTUZUMAB\TRASTUZUMAB
     Indication: Product used for unknown indication
     Dosage: ON 02-AUG,  SHE RECEIVED THE LAST DOSE OF PHESGO.
     Route: 065

REACTIONS (4)
  - Septic shock [Fatal]
  - Acute respiratory failure [Fatal]
  - Invasive breast carcinoma [Fatal]
  - Hypovolaemic shock [Fatal]
